FAERS Safety Report 19117746 (Version 8)
Quarter: 2021Q4

REPORT INFORMATION
  Report Type: Report from Study
  Country: US (occurrence: US)
  Receive Date: 20210409
  Receipt Date: 20211227
  Transmission Date: 20220303
  Serious: Yes (Hospitalization)
  Sender: FDA-Public Use
  Company Number: US-REGENERON PHARMACEUTICALS, INC.-2021-38164

PATIENT

DRUGS (9)
  1. CEMIPLIMAB [Suspect]
     Active Substance: CEMIPLIMAB
     Indication: Malignant glioma
     Dosage: 3 MG/KG, DAY 1 AND 15 OF 28-DAY CYCLE
     Route: 042
     Dates: start: 20201217, end: 20210325
  2. ACETAMINOPHEN [Concomitant]
     Active Substance: ACETAMINOPHEN
     Indication: Headache
     Dosage: 650 MG, Q6H
     Route: 048
     Dates: start: 20201217
  3. MIRALAX [Concomitant]
     Active Substance: POLYETHYLENE GLYCOL 3350
     Indication: Constipation
     Dosage: 34 G, BID
     Route: 048
     Dates: start: 20210127, end: 20210325
  4. SENNOSIDES A AND B [Concomitant]
     Active Substance: SENNOSIDES A AND B
     Indication: Constipation
     Dosage: 17.2 G, NIGHTLY
     Route: 048
     Dates: start: 20210127, end: 20210312
  5. BISACODYL [Concomitant]
     Active Substance: BISACODYL
     Indication: Constipation
     Dosage: 10 MG, QD
     Route: 054
     Dates: start: 20210124
  6. COLACE [Concomitant]
     Active Substance: DOCUSATE SODIUM
     Indication: Constipation
     Dosage: 50 MG, QD
     Route: 048
     Dates: start: 20210122, end: 20210325
  7. DEXAMETHASONE [Concomitant]
     Active Substance: DEXAMETHASONE
     Indication: Nervous system disorder
     Dosage: 1 MG, QD
     Route: 048
     Dates: start: 20210121, end: 20210302
  8. DEXAMETHASONE [Concomitant]
     Active Substance: DEXAMETHASONE
     Indication: Fall
     Dosage: 2 MG, BID
     Route: 048
     Dates: start: 20210302, end: 20210327
  9. FAMOTIDINE [Concomitant]
     Active Substance: FAMOTIDINE
     Indication: Prophylaxis
     Dosage: 20 MG, BID
     Route: 048
     Dates: start: 20210121, end: 20210325

REACTIONS (4)
  - Abdominal pain [Recovered/Resolved]
  - Rectal haemorrhage [Recovered/Resolved]
  - Muscular weakness [Recovered/Resolved]
  - Colitis [Recovered/Resolved with Sequelae]

NARRATIVE: CASE EVENT DATE: 20210326
